FAERS Safety Report 18324561 (Version 2)
Quarter: 2020Q4

REPORT INFORMATION
  Report Type: Spontaneous
  Country: BR (occurrence: BR)
  Receive Date: 20200928
  Receipt Date: 20201030
  Transmission Date: 20210113
  Serious: Yes (Death, Life-Threatening, Hospitalization, Disabling, Other)
  Sender: FDA-Public Use
  Company Number: BR-BIOMARINAP-BR-2020-132488

PATIENT
  Age: 24 Year
  Sex: Male

DRUGS (1)
  1. NAGLAZYME [Suspect]
     Active Substance: GALSULFASE
     Indication: MUCOPOLYSACCHARIDOSIS VI
     Dosage: 25 MILLIGRAM, QW
     Route: 042
     Dates: start: 20130725

REACTIONS (5)
  - Respiratory disorder [Unknown]
  - Dyspnoea [Unknown]
  - COVID-19 [Fatal]
  - Headache [Unknown]
  - Oxygen saturation decreased [Unknown]

NARRATIVE: CASE EVENT DATE: 20200923
